FAERS Safety Report 4421193-6 (Version None)
Quarter: 2004Q3

REPORT INFORMATION
  Report Type: 
  Country: None (occurrence: None)
  Receive Date: 20040809
  Receipt Date: 20040730
  Transmission Date: 20050211
  Serious: Yes (Hospitalization)
  Sender: FDA-Public Use
  Company Number: PHBS2004IT10081

PATIENT
  Age: 23 Year
  Sex: Female

DRUGS (2)
  1. TORECAN [Suspect]
     Dosage: 6.5 MG, BID
     Route: 065
     Dates: start: 20040630
  2. NIMESULIDE [Concomitant]
     Dosage: UNK, UNK
     Route: 048

REACTIONS (2)
  - EXTRAPYRAMIDAL DISORDER [None]
  - PARKINSON'S DISEASE [None]
